FAERS Safety Report 9476494 (Version 1)
Quarter: 2013Q3

REPORT INFORMATION
  Report Type: Spontaneous
  Country: US (occurrence: US)
  Receive Date: 20130826
  Receipt Date: 20130826
  Transmission Date: 20140515
  Serious: No
  Sender: FDA-Public Use
  Company Number: US-009507513-1308USA011144

PATIENT
  Age: 45 Year
  Sex: Male

DRUGS (7)
  1. VICTRELIS [Suspect]
     Indication: HEPATITIS C
     Dosage: TABLET
     Route: 048
     Dates: start: 20130316, end: 20130814
  2. PEGASYS [Suspect]
     Indication: HEPATITIS C
     Dosage: 180 MICROGRAM, QW
     Route: 058
     Dates: start: 20130316
  3. PEGASYS [Suspect]
     Dosage: 90 MICROGRAM, UNK
     Dates: end: 20130814
  4. COPEGUS [Suspect]
     Indication: HEPATITIS C
     Dosage: 3 DF, Q12H
     Route: 048
     Dates: start: 20130316
  5. COPEGUS [Suspect]
     Dosage: 3 DF, QD
     Dates: end: 20130814
  6. RISPERDAL [Concomitant]
     Indication: DEPRESSION
  7. METFORMIN HYDROCHLORIDE [Concomitant]
     Indication: DIABETES MELLITUS
     Dosage: 500 MG, UNK

REACTIONS (10)
  - Visual acuity reduced [Not Recovered/Not Resolved]
  - Hepatic pain [Not Recovered/Not Resolved]
  - White blood cell count decreased [Recovering/Resolving]
  - Gingival bleeding [Not Recovered/Not Resolved]
  - Photophobia [Not Recovered/Not Resolved]
  - Dyspnoea [Not Recovered/Not Resolved]
  - Red blood cell count decreased [Recovering/Resolving]
  - Nausea [Not Recovered/Not Resolved]
  - Alopecia [Not Recovered/Not Resolved]
  - Malaise [Unknown]
